FAERS Safety Report 19399462 (Version 1)
Quarter: 2021Q2

REPORT INFORMATION
  Report Type: Spontaneous
  Country: US (occurrence: US)
  Receive Date: 20210610
  Receipt Date: 20210610
  Transmission Date: 20210717
  Serious: Yes (Hospitalization)
  Sender: FDA-Public Use
  Company Number: None

PATIENT
  Age: 45 Year
  Sex: Female

DRUGS (1)
  1. BAMLANIVIMAB 700 MG ETESEVIMAB 1400 MG [Suspect]
     Active Substance: BAMLANIVIMAB\ETESEVIMAB
     Indication: COVID-19
     Dates: start: 20210609, end: 20210609

REACTIONS (4)
  - COVID-19 pneumonia [None]
  - Pneumonia viral [None]
  - Hypoxia [None]
  - Tachycardia [None]

NARRATIVE: CASE EVENT DATE: 20210609
